FAERS Safety Report 9303789 (Version 3)
Quarter: 2013Q3

REPORT INFORMATION
  Report Type: Spontaneous
  Country: US (occurrence: None)
  Receive Date: 20130122
  Receipt Date: 20130815
  Transmission Date: 20140515
  Serious: Yes (Other)
  Sender: FDA-Public Use
  Company Number: ADR-2012-01599

PATIENT
  Sex: Female

DRUGS (3)
  1. LIORESAL [Suspect]
     Indication: MUSCLE SPASTICITY
     Dosage: 100 MCG/DAY
  2. ORAL BACLOFEN [Concomitant]
  3. INSULIN [Concomitant]

REACTIONS (6)
  - Muscle spasms [None]
  - Muscle spasms [None]
  - Device malfunction [None]
  - Disorientation [None]
  - No therapeutic response [None]
  - Drug effect decreased [None]
